FAERS Safety Report 21077260 (Version 2)
Quarter: 2022Q3

REPORT INFORMATION
  Report Type: Spontaneous
  Country: IN (occurrence: IN)
  Receive Date: 20220713
  Receipt Date: 20220715
  Transmission Date: 20221027
  Serious: Yes (Other)
  Sender: FDA-Public Use
  Company Number: IN-NOVARTISPH-NVSC2022IN159055

PATIENT
  Age: 68 Year
  Sex: Female

DRUGS (1)
  1. ELTROMBOPAG OLAMINE [Suspect]
     Active Substance: ELTROMBOPAG OLAMINE
     Indication: Aplastic anaemia
     Dosage: 100 MG, QD
     Route: 065
     Dates: start: 20220705

REACTIONS (2)
  - Thrombocytopenia [Unknown]
  - Product use issue [Unknown]

NARRATIVE: CASE EVENT DATE: 20220705
